FAERS Safety Report 9424128 (Version 1)
Quarter: 2013Q3

REPORT INFORMATION
  Report Type: Spontaneous
  Country: AU (occurrence: AU)
  Receive Date: 20130729
  Receipt Date: 20130729
  Transmission Date: 20140515
  Serious: No
  Sender: FDA-Public Use
  Company Number: AU-009507513-1307AUS011541

PATIENT
  Age: 22 Month
  Sex: 0

DRUGS (1)
  1. LORATADINE [Suspect]
     Indication: RESPIRATORY DISORDER
     Dosage: 25 MG, UNK
     Route: 048
     Dates: start: 201111

REACTIONS (2)
  - Overdose [Unknown]
  - Accidental exposure to product by child [Unknown]
